FAERS Safety Report 6077890-2 (Version None)
Quarter: 2009Q1

REPORT INFORMATION
  Report Type: 
  Country: None (occurrence: None)
  Receive Date: 20090213
  Receipt Date: 20090203
  Transmission Date: 20090719
  Serious: Yes (Life-Threatening)
  Sender: FDA-Public Use
  Company Number: FR-PFIZER INC-2009166377

PATIENT

DRUGS (10)
  1. TRIFLUCAN [Suspect]
     Indication: LUNG DISORDER
     Dosage: UNK
     Route: 048
     Dates: start: 20081119, end: 20081125
  2. PENTAMIDINE ISETHIONATE [Suspect]
     Indication: LUNG DISORDER
     Dates: start: 20081014
  3. PENTAMIDINE ISETHIONATE [Suspect]
     Dates: start: 20081120, end: 20081120
  4. ROCEPHIN [Suspect]
     Indication: LUNG DISORDER
     Route: 048
     Dates: start: 20081119, end: 20081125
  5. TAVANIC [Suspect]
     Indication: LUNG DISORDER
     Route: 048
     Dates: start: 20081119, end: 20081125
  6. CYMEVAN [Concomitant]
     Dates: start: 20081125
  7. ARIXTRA [Concomitant]
  8. KALETRA [Concomitant]
     Route: 048
  9. EPIVIR [Concomitant]
     Route: 048
  10. VIDEX [Concomitant]
     Route: 048

REACTIONS (1)
  - HYPOTHERMIA [None]
